FAERS Safety Report 8794538 (Version 2)
Quarter: 2012Q4

REPORT INFORMATION
  Report Type: 
  Country: FI (occurrence: FI)
  Receive Date: 20120917
  Receipt Date: 20121024
  Transmission Date: 20130627
  Serious: Yes (Hospitalization, Other)
  Sender: FDA-Public Use
  Company Number: PHHY2012FI078552

PATIENT
  Age: 49 Year
  Sex: Male

DRUGS (2)
  1. LEPONEX [Suspect]
     Dates: start: 20120116
  2. LEPONEX [Suspect]
     Dosage: 500 mg, QD
     Dates: start: 20120805

REACTIONS (11)
  - General physical health deterioration [Unknown]
  - Hypertension [Unknown]
  - Hypoaesthesia [Unknown]
  - Palpitations [Unknown]
  - Heart rate increased [Recovered/Resolved]
  - Arrhythmia [Unknown]
  - Electrocardiogram QT prolonged [Recovering/Resolving]
  - Blood lactic acid increased [Unknown]
  - Glucose tolerance impaired [Unknown]
  - Blood glucose increased [Unknown]
  - Nausea [Unknown]
